FAERS Safety Report 5712046-1 (Version None)
Quarter: 2008Q2

REPORT INFORMATION
  Report Type: 
  Country: None (occurrence: None)
  Receive Date: 20080417
  Receipt Date: 20080404
  Transmission Date: 20081010
  Serious: Yes (Life-Threatening)
  Sender: FDA-Public Use
  Company Number: 2008EU000686

PATIENT
  Age: 65 Year
  Sex: Female

DRUGS (18)
  1. PROGRAF [Suspect]
     Indication: LUNG TRANSPLANT
     Dosage: 2MG, BID, ORAL
     Route: 048
     Dates: start: 20080307
  2. CELLCEPT [Suspect]
     Dosage: 0.5 G, BID, ORAL
     Route: 048
  3. FLAGYL [Suspect]
     Indication: BRONCHOPNEUMONIA
     Dosage: 500 MG, TID
     Dates: start: 20080306
  4. NOXAFIL [Suspect]
     Dosage: 400 MG, BID
  5. CASPOGUNGIN (CASPOFUNGIN) [Concomitant]
  6. POTASSIUM CHLORIDE [Concomitant]
  7. LIQUAEMIN INJ [Concomitant]
  8. RECORMON (ERYTHROPOIETIN HUMAN) [Concomitant]
  9. ALBUMIN (HUMAN) [Concomitant]
  10. FOLVITE (FOLIC ACID) [Concomitant]
  11. NEXIUM (ESOMEPRAZOLE MAGNESIUM) TABLET [Concomitant]
  12. NEPHROTRANS (SOIDUM BICARBONATE) CAPSULE [Concomitant]
  13. WELLVONE (ATOVAQUONE) SUSPENSION [Concomitant]
  14. PREDNISONE TAB [Concomitant]
  15. TOREM (TORASEMIDE) [Concomitant]
  16. ACTRAPID (INSULIN HUMAN) [Concomitant]
  17. OXAZEPAM [Concomitant]
  18. DAFALGAN [Concomitant]

REACTIONS (3)
  - EPILEPSY [None]
  - METABOLIC DISORDER [None]
  - NEUTROPENIA [None]
